FAERS Safety Report 5961737-6 (Version None)
Quarter: 2008Q4

REPORT INFORMATION
  Report Type: 
  Country: None (occurrence: None)
  Receive Date: 20081121
  Receipt Date: 20081117
  Transmission Date: 20090506
  Serious: Yes (Hospitalization)
  Sender: FDA-Public Use
  Company Number: NL-JNJFOC-20081103763

PATIENT
  Age: 72 Year
  Sex: Female
  Weight: 58 kg

DRUGS (3)
  1. ACETAMINOPHEN [Suspect]
  2. ACETAMINOPHEN [Suspect]
     Indication: DRUG USE FOR UNKNOWN INDICATION
  3. FLOXACILLIN SODIUM [Suspect]
     Indication: STAPHYLOCOCCAL INFECTION
     Route: 042

REACTIONS (2)
  - METABOLIC ACIDOSIS [None]
  - PYROGLUTAMATE INCREASED [None]
